FAERS Safety Report 21064943 (Version 3)
Quarter: 2023Q1

REPORT INFORMATION
  Report Type: Spontaneous
  Country: US (occurrence: US)
  Receive Date: 20220711
  Receipt Date: 20230105
  Transmission Date: 20230418
  Serious: No
  Sender: FDA-Public Use
  Company Number: US-HERON THERAPEUTICS, INC-HRTX-2022-000809

PATIENT
  Age: 58 Year
  Sex: Female

DRUGS (3)
  1. ZYNRELEF [Suspect]
     Active Substance: BUPIVACAINE\MELOXICAM
     Indication: Postoperative analgesia
     Dosage: 400/12 MILLIGRAM, SINGLE
     Route: 065
     Dates: start: 20220415, end: 20220415
  2. PERCOCET [Concomitant]
     Active Substance: ACETAMINOPHEN\OXYCODONE HYDROCHLORIDE
     Indication: Product used for unknown indication
     Dosage: 325 MILLIGRAM
     Dates: start: 20220415, end: 20220420
  3. KEFLEX [Concomitant]
     Active Substance: CEPHALEXIN
     Indication: Product used for unknown indication
     Dosage: 50 MILLIGRAM
     Dates: start: 20220416, end: 20220423

REACTIONS (2)
  - Wound drainage [Unknown]
  - Seroma [Recovered/Resolved]

NARRATIVE: CASE EVENT DATE: 20220415
